FAERS Safety Report 4659353-1 (Version None)
Quarter: 2005Q2

REPORT INFORMATION
  Report Type: 
  Country: None (occurrence: None)
  Receive Date: 20050502
  Receipt Date: 20050111
  Transmission Date: 20051028
  Serious: No
  Sender: FDA-Public Use
  Company Number: 200419481US

PATIENT
  Age: 67 Year
  Sex: Female
  Weight: 81.8 kg

DRUGS (1)
  1. KETEK [Suspect]
     Indication: TRACHEOBRONCHITIS
     Dosage: 800 MG/DAY
     Dates: start: 20051203

REACTIONS (1)
  - TREMOR [None]
